FAERS Safety Report 18202136 (Version 1)
Quarter: 2020Q3

REPORT INFORMATION
  Report Type: Spontaneous
  Country: US (occurrence: US)
  Receive Date: 20200827
  Receipt Date: 20200827
  Transmission Date: 20201103
  Serious: Yes (Other)
  Sender: FDA-Public Use
  Company Number: US-PFIZER INC-2020329635

PATIENT
  Age: 56 Year
  Sex: Male

DRUGS (1)
  1. DILANTIN [Suspect]
     Active Substance: PHENYTOIN
     Indication: SEIZURE
     Dosage: UNK
     Route: 048
     Dates: start: 1981

REACTIONS (6)
  - Cerebellar atrophy [Not Recovered/Not Resolved]
  - Tremor [Unknown]
  - Fall [Unknown]
  - Memory impairment [Unknown]
  - Balance disorder [Unknown]
  - Gait disturbance [Unknown]
